FAERS Safety Report 24113347 (Version 1)
Quarter: 2024Q3

REPORT INFORMATION
  Report Type: Spontaneous
  Country: FR (occurrence: FR)
  Receive Date: 20240719
  Receipt Date: 20240719
  Transmission Date: 20241016
  Serious: Yes (Other)
  Sender: TEVA
  Company Number: None

PATIENT
  Age: 72 Year
  Sex: Male
  Weight: 76 kg

DRUGS (2)
  1. CLARITHROMYCIN [Suspect]
     Active Substance: CLARITHROMYCIN
     Indication: Upper respiratory tract infection
     Dosage: 1 TABLET IN THE MORNING AND 1 TABLET IN THE EVENING,?CLARITHROMYCIN TEVA
     Route: 048
     Dates: start: 20240624, end: 20240626
  2. DUTASTERIDE TAMSULOSIN [Concomitant]
     Indication: Product used for unknown indication
     Dosage: DUTASTERIDE/TAMSULOSIN VIATRIS 0.5 MG/0.4 MG
     Route: 065

REACTIONS (4)
  - Myalgia [Recovered/Resolved]
  - Diarrhoea [Recovered/Resolved]
  - Arthralgia [Recovered/Resolved]
  - Headache [Recovered/Resolved]

NARRATIVE: CASE EVENT DATE: 20240626
